FAERS Safety Report 6154518-4 (Version None)
Quarter: 2009Q2

REPORT INFORMATION
  Report Type: 
  Country: None (occurrence: None)
  Receive Date: 20090414
  Receipt Date: 20090410
  Transmission Date: 20091009
  Serious: Yes (Hospitalization)
  Sender: FDA-Public Use
  Company Number: DE-WYE-G03456609

PATIENT
  Age: 34 Year
  Sex: Female
  Weight: 85 kg

DRUGS (4)
  1. TREVILOR RETARD [Suspect]
     Dosage: 70 CAPSULES (OVERDOSE AMOUNT 10500 MG)
     Route: 048
     Dates: start: 20090404, end: 20090404
  2. TAXILAN [Suspect]
     Dosage: 10 TABLETS (OVERDOSE AMOUNT 1000 MG)
     Route: 048
     Dates: start: 20090404, end: 20090404
  3. ERGENYL CHRONO [Suspect]
     Dosage: UNKNOWN OVERDOSE AMOUNT
     Route: 048
     Dates: start: 20090404, end: 20090404
  4. DOXEPIN HCL [Suspect]
     Dosage: 50 TABLETS (OVERDOSE AMOUNT 2500 MG)
     Route: 048
     Dates: start: 20090404, end: 20090404

REACTIONS (8)
  - BRADYCARDIA [None]
  - COMA [None]
  - CONVULSION [None]
  - HYPOTENSION [None]
  - INTENTIONAL OVERDOSE [None]
  - METABOLIC ACIDOSIS [None]
  - SUICIDE ATTEMPT [None]
  - TACHYARRHYTHMIA [None]
